FAERS Safety Report 7074260-5 (Version None)
Quarter: 2010Q4

REPORT INFORMATION
  Report Type: 
  Country: None (occurrence: None)
  Receive Date: 20101029
  Receipt Date: 20101022
  Transmission Date: 20110411
  Serious: Yes (Hospitalization)
  Sender: FDA-Public Use
  Company Number: US-US-EMD SERONO, INC.-7020763

PATIENT
  Sex: Female
  Weight: 91 kg

DRUGS (12)
  1. REBIF [Suspect]
     Indication: RELAPSING-REMITTING MULTIPLE SCLEROSIS
     Route: 058
     Dates: start: 20100701
  2. OPIOIDS [Concomitant]
     Indication: PAIN IN EXTREMITY
  3. NEURONTIN [Concomitant]
     Indication: PAIN IN EXTREMITY
     Route: 048
  4. FLEXERIL [Concomitant]
     Indication: PAIN IN EXTREMITY
     Route: 048
  5. PERCOCET [Concomitant]
     Indication: PAIN IN EXTREMITY
     Route: 048
  6. METOPROLOL [Concomitant]
     Indication: HYPERTENSION
     Route: 048
  7. VITAMIN B-12 [Concomitant]
     Indication: HYPOVITAMINOSIS
     Route: 058
     Dates: start: 20101001, end: 20101001
  8. VITAMIN B-12 [Concomitant]
     Route: 030
     Dates: start: 20101001
  9. VITAMIN D2 [Concomitant]
     Indication: HYPOVITAMINOSIS
     Route: 048
  10. FAMOTODINE [Concomitant]
     Route: 048
  11. AMBIEN [Concomitant]
     Indication: SLEEP DISORDER
     Route: 048
  12. OXYCONTIN [Concomitant]
     Route: 048

REACTIONS (5)
  - CONVULSION [None]
  - GASTRIC ULCER [None]
  - INFLUENZA LIKE ILLNESS [None]
  - MULTIPLE SCLEROSIS RELAPSE [None]
  - POSTURAL ORTHOSTATIC TACHYCARDIA SYNDROME [None]
